FAERS Safety Report 18916506 (Version 1)
Quarter: 2021Q1

REPORT INFORMATION
  Report Type: Spontaneous
  Country: US (occurrence: US)
  Receive Date: 20210219
  Receipt Date: 20210219
  Transmission Date: 20210420
  Serious: Yes (Hospitalization)
  Sender: FDA-Public Use
  Company Number: None

PATIENT
  Age: 57 Year
  Sex: Female
  Weight: 66.7 kg

DRUGS (9)
  1. FAMOTIDINE. [Concomitant]
     Active Substance: FAMOTIDINE
  2. MELATONIN [Concomitant]
     Active Substance: MELATONIN
  3. MONTELUKAST [Concomitant]
     Active Substance: MONTELUKAST SODIUM
  4. FLUTICASONE. [Concomitant]
     Active Substance: FLUTICASONE
  5. DEXAMETHASONE. [Concomitant]
     Active Substance: DEXAMETHASONE
  6. BAMLANIVIMAB FOR EUA [Suspect]
     Active Substance: BAMLANIVIMAB
     Indication: COVID-19
     Route: 042
     Dates: start: 20210208, end: 20210208
  7. BECLOMETHASONE [Concomitant]
     Active Substance: BECLOMETHASONE
  8. BUPROPION. [Concomitant]
     Active Substance: BUPROPION
  9. ZINC. [Concomitant]
     Active Substance: ZINC

REACTIONS (4)
  - Sinus arrhythmia [None]
  - Blood glucose increased [None]
  - Fibrin D dimer decreased [None]
  - Chronic kidney disease [None]

NARRATIVE: CASE EVENT DATE: 20210210
